FAERS Safety Report 5345811-3 (Version None)
Quarter: 2007Q2

REPORT INFORMATION
  Report Type: 
  Country: None (occurrence: None)
  Receive Date: 20070601
  Receipt Date: 20070524
  Transmission Date: 20071010
  Serious: Yes (Hospitalization, Other)
  Sender: FDA-Public Use
  Company Number: 2007US001194

PATIENT
  Age: 34 Year
  Sex: Female

DRUGS (11)
  1. AMBISOME [Suspect]
     Indication: FEBRILE BONE MARROW APLASIA
     Dosage: 70 MG, UID/QD, IV NOS
     Route: 042
     Dates: start: 20070502, end: 20070507
  2. CLINOMEL (GLUCOSE, ELECTROLYTES NOS, AMINO ACIDS NOS, LIPIDS NOS, CALC [Concomitant]
  3. VALIUM [Concomitant]
  4. HEPARIN [Concomitant]
  5. OMEPRAZOLE [Concomitant]
  6. CYCLOSPORINE [Concomitant]
  7. ACUPAN [Concomitant]
  8. MORPHINE [Concomitant]
  9. CEFTAZIDIME PENTAHYDRATE [Concomitant]
  10. VANCOMYCIN HYDROCHLORIDE [Concomitant]
  11. SOLU-MEDROL [Concomitant]

REACTIONS (4)
  - CHEST DISCOMFORT [None]
  - DYSPNOEA [None]
  - OXYGEN SATURATION DECREASED [None]
  - TACHYCARDIA [None]
